FAERS Safety Report 25681491 (Version 1)
Quarter: 2025Q3

REPORT INFORMATION
  Report Type: Spontaneous
  Country: US (occurrence: US)
  Receive Date: 20250814
  Receipt Date: 20250814
  Transmission Date: 20251020
  Serious: Yes (Other)
  Sender: RANBAXY
  Company Number: US-SUN PHARMACEUTICAL INDUSTRIES INC-2025R1-522762

PATIENT
  Age: 51 Year
  Sex: Male

DRUGS (2)
  1. PREDNISONE [Suspect]
     Active Substance: PREDNISONE
     Indication: Scabies
     Route: 065
  2. PERMETHRIN [Suspect]
     Active Substance: PERMETHRIN
     Indication: Scabies
     Route: 065

REACTIONS (1)
  - Treatment failure [Unknown]
